FAERS Safety Report 9650156 (Version 2)
Quarter: 2013Q4

REPORT INFORMATION
  Report Type: Spontaneous
  Country: US (occurrence: US)
  Receive Date: 20131028
  Receipt Date: 20131028
  Transmission Date: 20140711
  Serious: No
  Sender: FDA-Public Use
  Company Number: US-PURDUE-USA-2013-0097370

PATIENT
  Sex: Male

DRUGS (3)
  1. OXYCONTIN (NDA 22-272) [Suspect]
     Indication: PAIN
     Dosage: 160 MG (80MG, 2 TABLETS), TID
     Route: 048
  2. OXYCONTIN (NDA 22-272) [Suspect]
     Dosage: 80 MG (40MG TABLETS, 2 TABLETS), TID
     Route: 048
  3. OXYCONTIN (NDA 22-272) [Suspect]
     Dosage: 7 TABLETS DAILY FOR SEVEN DAYS, THEN SIX TABLETS DAILY  FOR 7 DAYS, THEN FIVE TABLETS  DAILY FOR SEV
     Route: 048

REACTIONS (6)
  - Drug withdrawal syndrome [Unknown]
  - Chills [Unknown]
  - Diarrhoea [Unknown]
  - Vomiting [Unknown]
  - Tremor [Unknown]
  - Drug level decreased [Unknown]
